FAERS Safety Report 7824826-7 (Version None)
Quarter: 2011Q4

REPORT INFORMATION
  Report Type: 
  Country: None (occurrence: None)
  Receive Date: 20111019
  Receipt Date: 20110712
  Transmission Date: 20120403
  Serious: Yes (Hospitalization)
  Sender: FDA-Public Use
  Company Number: US-BRISTOL-MYERS SQUIBB COMPANY-15536493

PATIENT
  Age: 72 Year
  Sex: Female

DRUGS (2)
  1. AVALIDE [Suspect]
     Dosage: 1DF:150/12.5MG.FOR BATCH NO 0F61157A. NDC NO-2776-32.EXP DATE-JUN2013.
     Dates: start: 20080301
  2. DILTIAZEM HCL [Suspect]

REACTIONS (1)
  - BLOOD PRESSURE FLUCTUATION [None]
